FAERS Safety Report 12210743 (Version 1)
Quarter: 2016Q1

REPORT INFORMATION
  Report Type: Spontaneous
  Country: US (occurrence: None)
  Receive Date: 20160324
  Receipt Date: 20160324
  Transmission Date: 20160526
  Serious: Yes (Death)
  Sender: FDA-Public Use
  Company Number: None

PATIENT
  Age: 69 Year
  Sex: Female

DRUGS (1)
  1. SOMAVERT [Suspect]
     Active Substance: PEGVISOMANT
     Indication: IMMUNODEFICIENCY
     Route: 058
     Dates: start: 20150924, end: 20160308

REACTIONS (1)
  - Disease complication [None]

NARRATIVE: CASE EVENT DATE: 20160308
